FAERS Safety Report 10193844 (Version 1)
Quarter: 2014Q2

REPORT INFORMATION
  Report Type: Spontaneous
  Country: US (occurrence: US)
  Receive Date: 20140524
  Receipt Date: 20140524
  Transmission Date: 20141212
  Serious: No
  Sender: FDA-Public Use
  Company Number: US-SANOFI-AVENTIS-2013SA044529

PATIENT
  Age: 61 Year
  Sex: Male

DRUGS (5)
  1. LANTUS [Suspect]
     Indication: TYPE 2 DIABETES MELLITUS
     Dosage: START DATE: 2-3 YEARS AGO?DOSE: 40 AM/ 45 PM
     Route: 051
  2. LISINOPRIL [Concomitant]
     Indication: BLOOD PRESSURE
  3. FINASTERIDE [Concomitant]
     Indication: PROSTATOMEGALY
  4. METFORMIN [Concomitant]
     Indication: DIABETES MELLITUS
  5. GEMFIBROZIL [Concomitant]
     Indication: BLOOD CHOLESTEROL

REACTIONS (5)
  - Insomnia [Unknown]
  - Blood glucose increased [Unknown]
  - Pollakiuria [Unknown]
  - Blood glucose abnormal [Recovered/Resolved]
  - Drug ineffective [Unknown]
